FAERS Safety Report 8364046-3 (Version None)
Quarter: 2012Q2

REPORT INFORMATION
  Report Type: 
  Country: None (occurrence: None)
  Receive Date: 20120516
  Receipt Date: 20120228
  Transmission Date: 20120825
  Serious: No
  Sender: FDA-Public Use
  Company Number: US-ALEXION-A201200384

PATIENT
  Sex: Female

DRUGS (3)
  1. SOLIRIS [Suspect]
     Indication: PAROXYSMAL NOCTURNAL HAEMOGLOBINURIA
     Dosage: UNK
     Route: 042
  2. BIAXIN [Suspect]
     Indication: HELICOBACTER INFECTION
     Dosage: 50 MG, BID
     Dates: start: 20120215, end: 20120226
  3. AMOXICILLIN [Suspect]
     Indication: HELICOBACTER INFECTION
     Dosage: 500 MG, BID
     Dates: start: 20120215, end: 20120226

REACTIONS (2)
  - RASH GENERALISED [None]
  - HELICOBACTER INFECTION [None]
